FAERS Safety Report 14393156 (Version 2)
Quarter: 2018Q2

REPORT INFORMATION
  Report Type: Spontaneous
  Country: US (occurrence: US)
  Receive Date: 20180116
  Receipt Date: 20180413
  Transmission Date: 20180711
  Serious: No
  Sender: FDA-Public Use
  Company Number: US-NOVOPROD-577520

PATIENT
  Age: 64 Year
  Sex: Male

DRUGS (3)
  1. TRESIBA FLEXTOUCH U200 [Suspect]
     Active Substance: INSULIN DEGLUDEC
     Indication: TYPE 2 DIABETES MELLITUS
     Dosage: 24 U, QD
     Route: 058
     Dates: start: 201608
  2. TRESIBA FLEXTOUCH U200 [Suspect]
     Active Substance: INSULIN DEGLUDEC
     Dosage: 20 U, UNK
     Route: 058
     Dates: start: 20171213
  3. TRESIBA FLEXTOUCH U200 [Suspect]
     Active Substance: INSULIN DEGLUDEC
     Dosage: 12 U, UNK
     Route: 058
     Dates: start: 20171214

REACTIONS (11)
  - Toxicity to various agents [Recovered/Resolved]
  - Abdominal pain lower [Recovered/Resolved]
  - Malaise [Recovered/Resolved]
  - Fluid retention [Recovered/Resolved]
  - Micturition disorder [Recovered/Resolved]
  - Product quality issue [Recovered/Resolved]
  - Liver disorder [Recovered/Resolved]
  - Hyperhidrosis [Recovered/Resolved]
  - Blood glucose increased [Recovered/Resolved]
  - Renal disorder [Recovered/Resolved]
  - Retching [Recovered/Resolved]

NARRATIVE: CASE EVENT DATE: 201712
